FAERS Safety Report 9539103 (Version 1)
Quarter: 2013Q2

REPORT INFORMATION
  Report Type: Spontaneous
  Country: US (occurrence: None)
  Receive Date: 20130507
  Receipt Date: 20130507
  Transmission Date: 20140414
  Serious: No
  Sender: FDA-Public Use
  Company Number: PHEH2013US004915

PATIENT
  Sex: Male

DRUGS (4)
  1. AFINITOR [Suspect]
     Route: 048
  2. NOVOLOG (INSULIN ASPART) [Concomitant]
  3. LANTUS (INSULIN GLARGINE) [Concomitant]
  4. VITAMIN B (VITAMIN B COMPLEX) [Concomitant]

REACTIONS (3)
  - Dry skin [None]
  - Pruritus [None]
  - Weight decreased [None]
